FAERS Safety Report 6068344-8 (Version None)
Quarter: 2009Q1

REPORT INFORMATION
  Report Type: 
  Country: None (occurrence: None)
  Receive Date: 20090206
  Receipt Date: 20090128
  Transmission Date: 20090719
  Serious: No
  Sender: FDA-Public Use
  Company Number: US-JNJFOC-20081105071

PATIENT
  Sex: Female

DRUGS (11)
  1. DURAGESIC-100 [Suspect]
     Route: 062
  2. DURAGESIC-100 [Suspect]
     Route: 062
  3. DURAGESIC-100 [Suspect]
     Indication: PAIN
     Route: 062
  4. DURAGESIC-100 [Suspect]
     Indication: BACK PAIN
     Route: 062
  5. BACLOFEN [Concomitant]
     Indication: MUSCLE DISORDER
     Route: 048
  6. NEURONTIN [Concomitant]
     Indication: PAIN
     Route: 048
  7. VICODIN [Concomitant]
     Indication: PAIN
     Route: 048
  8. SEREVENT [Concomitant]
     Indication: ASTHMA
     Dosage: 2 PUFFS DAILY
     Route: 048
  9. FLOVENT [Concomitant]
     Indication: ASTHMA
     Dosage: 2 PUFFS DAILY
     Route: 048
  10. ALBUTEROL [Concomitant]
     Indication: ASTHMA
     Dosage: 2 PUFFS AS NEEDED
     Route: 048
  11. QUINAPRIL [Concomitant]
     Indication: BLOOD PRESSURE
     Route: 048

REACTIONS (6)
  - DRUG EFFECT INCREASED [None]
  - HEARING IMPAIRED [None]
  - INCORRECT DRUG ADMINISTRATION DURATION [None]
  - SOMNOLENCE [None]
  - SPINAL DISORDER [None]
  - WITHDRAWAL SYNDROME [None]
